FAERS Safety Report 9097499 (Version 2)
Quarter: 2014Q2

REPORT INFORMATION
  Report Type: Spontaneous
  Country: TW (occurrence: TW)
  Receive Date: 20130212
  Receipt Date: 20140404
  Transmission Date: 20141212
  Serious: Yes (Other)
  Sender: FDA-Public Use
  Company Number: PHHY2013TW004409

PATIENT
  Sex: Female

DRUGS (6)
  1. ZADITEN [Suspect]
     Dosage: UNK
     Route: 047
     Dates: start: 20130106, end: 20130110
  2. STEROIDS NOS [Concomitant]
  3. IMURAN [Concomitant]
     Dosage: 50 MG, QOD
  4. PLAQUENIL [Concomitant]
     Dosage: 200 MG, QD
     Route: 048
  5. PREDNISOLONE [Concomitant]
     Dosage: 5 MG, QOD
     Route: 048
  6. BLOPRESS [Concomitant]
     Indication: ATRIOVENTRICULAR BLOCK
     Dosage: 0.25 MG, QD
     Route: 048

REACTIONS (1)
  - Ageusia [Recovering/Resolving]
